FAERS Safety Report 6035506-5 (Version None)
Quarter: 2009Q1

REPORT INFORMATION
  Report Type: 
  Country: None (occurrence: None)
  Receive Date: 20090112
  Receipt Date: 20090112
  Transmission Date: 20090719
  Serious: Yes (Other)
  Sender: FDA-Public Use
  Company Number: None

PATIENT
  Age: 81 Year
  Sex: Female
  Weight: 65.7716 kg

DRUGS (1)
  1. BAYER ASPIRIN WITH HEART ADVANTAGE [Suspect]
     Indication: BLOOD CHOLESTEROL INCREASED
     Dosage: 1 DF, QD, NI
     Route: 048

REACTIONS (1)
  - GASTROINTESTINAL HAEMORRHAGE [None]
